FAERS Safety Report 13797939 (Version 1)
Quarter: 2017Q3

REPORT INFORMATION
  Report Type: Spontaneous
  Country: US (occurrence: US)
  Receive Date: 20170726
  Receipt Date: 20170726
  Transmission Date: 20171127
  Serious: Yes (Life-Threatening)
  Sender: FDA-Public Use
  Company Number: None

PATIENT
  Age: 49 Year
  Sex: Male
  Weight: 61.2 kg

DRUGS (4)
  1. AMYLODIPINE [Concomitant]
  2. TELMISARTAN. [Concomitant]
     Active Substance: TELMISARTAN
  3. TELMISA HCTZ 40-12.5 MG [Suspect]
     Active Substance: HYDROCHLOROTHIAZIDE\TELMISARTAN
     Indication: BLOOD PRESSURE MEASUREMENT
     Dosage: ?          QUANTITY:90 TABLET(S);?
     Route: 048
     Dates: start: 20170704, end: 20170723
  4. PRAVASTATIN. [Concomitant]
     Active Substance: PRAVASTATIN

REACTIONS (6)
  - Paraesthesia [None]
  - Hypertension [None]
  - Headache [None]
  - Product quality issue [None]
  - Drug ineffective [None]
  - Capillary fragility [None]

NARRATIVE: CASE EVENT DATE: 20170717
